FAERS Safety Report 22643483 (Version 1)
Quarter: 2023Q2

REPORT INFORMATION
  Report Type: Spontaneous
  Country: FR (occurrence: FR)
  Receive Date: 20230627
  Receipt Date: 20230627
  Transmission Date: 20230721
  Serious: Yes (Life-Threatening, Hospitalization)
  Sender: FDA-Public Use
  Company Number: FR-AFSSAPS-CF2023000236

PATIENT
  Age: 64 Year
  Sex: Female
  Weight: 48 kg

DRUGS (2)
  1. VENLAFAXINE [Suspect]
     Active Substance: VENLAFAXINE HYDROCHLORIDE
     Indication: Depression
     Dosage: 75 MILLIGRAM, TWO TIMES A DAY
     Route: 048
     Dates: start: 20230421
  2. LORMETAZEPAM [Suspect]
     Active Substance: LORMETAZEPAM
     Indication: Anxiety
     Dosage: 2 MILLIGRAM, ONCE A DAY
     Route: 048
     Dates: start: 20230421, end: 20230423

REACTIONS (3)
  - Disinhibition [Recovered/Resolved]
  - Hypotension [Recovered/Resolved]
  - Somnolence [Recovered/Resolved]

NARRATIVE: CASE EVENT DATE: 20230423
